FAERS Safety Report 23486778 (Version 1)
Quarter: 2024Q1

REPORT INFORMATION
  Report Type: Spontaneous
  Country: GB (occurrence: GB)
  Receive Date: 20240206
  Receipt Date: 20240206
  Transmission Date: 20240410
  Serious: Yes (Hospitalization, Disabling, Other)
  Sender: FDA-Public Use
  Company Number: None

PATIENT
  Age: 67 Year
  Sex: Female
  Weight: 69 kg

DRUGS (22)
  1. OXALIPLATIN [Suspect]
     Active Substance: OXALIPLATIN
     Indication: Neoplasm malignant
     Dates: end: 20110501
  2. CAPECITABINE [Suspect]
     Active Substance: CAPECITABINE
     Indication: Neoplasm malignant
     Dates: end: 20110501
  3. AMITRIPTYLINE [Concomitant]
     Active Substance: AMITRIPTYLINE
  4. ANIDULAFUNGIN [Concomitant]
     Active Substance: ANIDULAFUNGIN
  5. CITALOPRAM [Concomitant]
     Active Substance: CITALOPRAM HYDROBROMIDE
  6. CLOPIDOGREL [Concomitant]
     Active Substance: CLOPIDOGREL BISULFATE
  7. FENTANYL [Concomitant]
     Active Substance: FENTANYL\FENTANYL CITRATE
  8. FUROSEMIDE [Concomitant]
     Active Substance: FUROSEMIDE
  9. GENTAMICIN [Concomitant]
     Active Substance: GENTAMICIN
  10. HEPARIN [Concomitant]
     Active Substance: HEPARIN SODIUM
  11. HYDROCORTISONE [Concomitant]
     Active Substance: HYDROCORTISONE
  12. LORAZEPAM [Concomitant]
     Active Substance: LORAZEPAM
  13. MEROPENEM [Concomitant]
     Active Substance: MEROPENEM
  14. MIDAZOLAM [Concomitant]
     Active Substance: MIDAZOLAM
  15. NOREPINEPHRINE [Concomitant]
     Active Substance: NOREPINEPHRINE
  16. OMEPRAZOLE [Concomitant]
     Active Substance: OMEPRAZOLE
  17. PANTOPRAZOLE [Concomitant]
     Active Substance: PANTOPRAZOLE
  18. PIPERACILLIN AND TAZOBACTAM [Concomitant]
     Active Substance: PIPERACILLIN SODIUM\TAZOBACTAM SODIUM
  19. PROPOFOL [Concomitant]
     Active Substance: PROPOFOL
  20. VANCOMYCIN [Concomitant]
     Active Substance: VANCOMYCIN
  21. AMLODIPINE [Concomitant]
     Active Substance: AMLODIPINE BESYLATE
  22. DIAZEPAM [Concomitant]
     Active Substance: DIAZEPAM
     Indication: Depression

REACTIONS (13)
  - Interstitial lung disease [Unknown]
  - Pyrexia [Unknown]
  - Pneumonia [Unknown]
  - Haemoptysis [Unknown]
  - Transient ischaemic attack [Unknown]
  - Ataxia [Unknown]
  - Coordination abnormal [Unknown]
  - Confusional state [Unknown]
  - Incontinence [Unknown]
  - Hyponatraemia [Unknown]
  - Respiratory failure [Unknown]
  - Pulmonary sepsis [Unknown]
  - Acute kidney injury [Unknown]

NARRATIVE: CASE EVENT DATE: 20110301
